FAERS Safety Report 22272701 (Version 1)
Quarter: 2023Q2

REPORT INFORMATION
  Report Type: Spontaneous
  Country: US (occurrence: US)
  Receive Date: 20230502
  Receipt Date: 20230502
  Transmission Date: 20230722
  Serious: Yes (Hospitalization, Other)
  Sender: FDA-Public Use
  Company Number: US-BRISTOL-MYERS SQUIBB COMPANY-2023-061017

PATIENT
  Age: 85 Year
  Sex: Male
  Weight: 77.11 kg

DRUGS (3)
  1. ELIQUIS [Suspect]
     Active Substance: APIXABAN
     Indication: Cerebrovascular accident prophylaxis
  2. VYNDAMAX [Suspect]
     Active Substance: TAFAMIDIS
     Indication: Amyloidosis
     Dates: start: 2022
  3. JARDIANCE [Suspect]
     Active Substance: EMPAGLIFLOZIN
     Indication: Amyloidosis
     Dates: start: 202204, end: 202304

REACTIONS (4)
  - Urosepsis [Unknown]
  - Haemorrhage [Unknown]
  - Tooth disorder [Unknown]
  - Haematoma [Unknown]

NARRATIVE: CASE EVENT DATE: 20230327
